FAERS Safety Report 20878250 (Version 1)
Quarter: 2022Q2

REPORT INFORMATION
  Report Type: Spontaneous
  Country: US (occurrence: US)
  Receive Date: 20220526
  Receipt Date: 20220526
  Transmission Date: 20220721
  Serious: No
  Sender: FDA-Public Use
  Company Number: US-BAYER-2022A073163

PATIENT
  Age: 81 Year
  Sex: Male

DRUGS (8)
  1. MIRALAX [Suspect]
     Active Substance: POLYETHYLENE GLYCOL 3350
     Indication: Constipation
     Dosage: ;6 CAPFUL MIXED WITH 8 OZ OF WATER DOSE
     Route: 048
     Dates: start: 202205, end: 202205
  2. MIRALAX [Suspect]
     Active Substance: POLYETHYLENE GLYCOL 3350
     Indication: Gastrointestinal disorder
  3. TAMSULOSIN [Concomitant]
     Active Substance: TAMSULOSIN
  4. ARIPIPRAZOLE [Concomitant]
     Active Substance: ARIPIPRAZOLE
  5. BAYER ASPIRIN [Concomitant]
     Active Substance: ASPIRIN
     Route: 048
  6. WARFARIN [Concomitant]
     Active Substance: WARFARIN
  7. FINASTERIDE [Concomitant]
     Active Substance: FINASTERIDE
  8. VITAMINS [Concomitant]
     Active Substance: VITAMINS

REACTIONS (1)
  - Extra dose administered [Unknown]

NARRATIVE: CASE EVENT DATE: 20220501
